FAERS Safety Report 17879514 (Version 2)
Quarter: 2020Q2

REPORT INFORMATION
  Report Type: Report from Study
  Country: US (occurrence: US)
  Receive Date: 20200610
  Receipt Date: 20200618
  Transmission Date: 20200714
  Serious: Yes (Hospitalization)
  Sender: FDA-Public Use
  Company Number: US-BAYER-2020-105046

PATIENT
  Age: 83 Year
  Sex: Female

DRUGS (1)
  1. ADEMPAS [Suspect]
     Active Substance: RIOCIGUAT
     Indication: PULMONARY ARTERIAL HYPERTENSION
     Dosage: 0.5 MG, TID
     Route: 048
     Dates: start: 20191226

REACTIONS (4)
  - Hospitalisation [Unknown]
  - Dysphonia [Unknown]
  - Dyspnoea [Unknown]
  - Product dose omission [None]

NARRATIVE: CASE EVENT DATE: 202005
